FAERS Safety Report 23323595 (Version 1)
Quarter: 2023Q4

REPORT INFORMATION
  Report Type: Spontaneous
  Country: US (occurrence: None)
  Receive Date: 20231220
  Receipt Date: 20231220
  Transmission Date: 20240109
  Serious: No
  Sender: FDA-Public Use
  Company Number: US-ROCHE-3380694

PATIENT
  Age: 45 Year
  Sex: Female
  Weight: 64.468 kg

DRUGS (5)
  1. RITUXAN [Suspect]
     Active Substance: RITUXIMAB
     Indication: Multiple sclerosis
     Dosage: JUST ONE DOSE, HER LAST DOSE WAS ON 26/JAN/2023
     Route: 042
     Dates: start: 201801
  2. RITUXAN [Suspect]
     Active Substance: RITUXIMAB
     Dosage: JUST ONE DOSE
     Route: 042
     Dates: start: 2018
  3. AMPYRA [Concomitant]
     Active Substance: DALFAMPRIDINE
     Route: 048
  4. EXTAVIA [Concomitant]
     Active Substance: INTERFERON BETA-1B
     Dates: start: 2017
  5. INTERFERON [Concomitant]
     Active Substance: INTERFERON
     Dates: start: 2017

REACTIONS (2)
  - Off label use [Unknown]
  - No adverse event [Unknown]

NARRATIVE: CASE EVENT DATE: 20180101
